FAERS Safety Report 24653456 (Version 4)
Quarter: 2025Q4

REPORT INFORMATION
  Report Type: Spontaneous
  Country: US (occurrence: US)
  Receive Date: 20241122
  Receipt Date: 20251121
  Transmission Date: 20260117
  Serious: No
  Sender: NOVO NORDISK
  Company Number: US-NOVOPROD-1283141

PATIENT
  Age: 60 Year
  Sex: Female

DRUGS (2)
  1. TRESIBA [Suspect]
     Active Substance: INSULIN DEGLUDEC
     Indication: Diabetes mellitus
     Dosage: 182 UNITS (116 UNITS AM  66 UNITS PM)
     Route: 058
     Dates: start: 20240128
  2. TRESIBA [Suspect]
     Active Substance: INSULIN DEGLUDEC
     Indication: Diabetes mellitus
     Dosage: UNK
     Route: 058

REACTIONS (4)
  - Gastrointestinal disorder [Not Recovered/Not Resolved]
  - Headache [Recovered/Resolved]
  - Glycosylated haemoglobin increased [Not Recovered/Not Resolved]
  - Blood glucose increased [Not Recovered/Not Resolved]

NARRATIVE: CASE EVENT DATE: 20240228
